FAERS Safety Report 10018023 (Version 1)
Quarter: 2014Q1

REPORT INFORMATION
  Report Type: Spontaneous
  Country: US (occurrence: None)
  Receive Date: 20140313
  Receipt Date: 20140313
  Transmission Date: 20141002
  Serious: Yes (Life-Threatening)
  Sender: FDA-Public Use
  Company Number: None

PATIENT
  Age: 69 Year
  Sex: Female
  Weight: 97.52 kg

DRUGS (6)
  1. CLOBETASOL [Suspect]
     Indication: RASH PAPULAR
     Dates: end: 20120531
  2. ATENOLOL [Concomitant]
  3. NORVASC [Concomitant]
  4. LEVOTHYROXEN [Concomitant]
  5. HCTZ [Concomitant]
  6. REQUIP [Concomitant]

REACTIONS (1)
  - Precancerous skin lesion [None]
